FAERS Safety Report 6762408-9 (Version None)
Quarter: 2010Q2

REPORT INFORMATION
  Report Type: 
  Country: None (occurrence: None)
  Receive Date: 20100609
  Receipt Date: 20100601
  Transmission Date: 20101027
  Serious: Yes (Other)
  Sender: FDA-Public Use
  Company Number: US-ROCHE-707600

PATIENT
  Sex: Female
  Weight: 63.5 kg

DRUGS (1)
  1. CAPECITABINE [Suspect]
     Indication: BREAST CANCER
     Route: 048
     Dates: start: 20091204

REACTIONS (5)
  - BLISTER [None]
  - DIARRHOEA [None]
  - GAIT DISTURBANCE [None]
  - LYMPHOMA [None]
  - NAUSEA [None]
